FAERS Safety Report 18561971 (Version 3)
Quarter: 2021Q1

REPORT INFORMATION
  Report Type: Spontaneous
  Country: BR (occurrence: BR)
  Receive Date: 20201201
  Receipt Date: 20210110
  Transmission Date: 20210419
  Serious: Yes (Death, Disabling, Other)
  Sender: FDA-Public Use
  Company Number: BR-AMGEN-BRASP2020193876

PATIENT
  Age: 60 Year
  Sex: Male
  Weight: 71 kg

DRUGS (7)
  1. LASIX [Concomitant]
     Active Substance: FUROSEMIDE
     Indication: DYSURIA
     Dosage: UNK, QD (IN THE MORNING)
     Dates: start: 2005
  2. IRON [Concomitant]
     Active Substance: IRON
     Dosage: UNK
     Dates: start: 2018
  3. CALCIUM [Concomitant]
     Active Substance: CALCIUM
     Dosage: 1 DF, 1X/DAY (1 TABLET A DAY)
  4. ENBREL [Suspect]
     Active Substance: ETANERCEPT
     Indication: ANKYLOSING SPONDYLITIS
     Dosage: UNK, QWK
     Route: 058
     Dates: start: 2000, end: 2016
  5. COSENTYX [Suspect]
     Active Substance: SECUKINUMAB
     Indication: ANKYLOSING SPONDYLITIS
     Dosage: UNK, CYCLICAL (EVERY 15 DAYS)
     Route: 058
     Dates: start: 2017, end: 2019
  6. PROFENID [Concomitant]
     Active Substance: KETOPROFEN
     Indication: ANTIINFLAMMATORY THERAPY
     Dosage: UNK, AS NECESSARY
  7. OMEPRAZOLE. [Concomitant]
     Active Substance: OMEPRAZOLE
     Dosage: 1 DF, DAILY (1 TABLET IN THE MORNING ON AN EMPTY STOMACH)

REACTIONS (12)
  - Urinary tract infection [Not Recovered/Not Resolved]
  - Myocardial infarction [Unknown]
  - Fall [Unknown]
  - Feeling hot [Not Recovered/Not Resolved]
  - Venous injury [Unknown]
  - Weight decreased [Not Recovered/Not Resolved]
  - Cardiac failure [Fatal]
  - Spinal pain [Not Recovered/Not Resolved]
  - Poor quality sleep [Unknown]
  - Muscle spasms [Not Recovered/Not Resolved]
  - Venous occlusion [Unknown]
  - Asthenia [Not Recovered/Not Resolved]

NARRATIVE: CASE EVENT DATE: 20050805
